FAERS Safety Report 9056495 (Version 1)
Quarter: 2013Q1

REPORT INFORMATION
  Report Type: Spontaneous
  Country: US (occurrence: US)
  Receive Date: 20130204
  Receipt Date: 20130204
  Transmission Date: 20140127
  Serious: No
  Sender: FDA-Public Use
  Company Number: US-ASTRAZENECA-2013SE07071

PATIENT
  Age: 73 Year
  Sex: Female
  Weight: 82.6 kg

DRUGS (7)
  1. SYMBICORT [Suspect]
     Indication: ASTHMA
     Dosage: 80 /4.5 ONE PUFF BID
     Route: 055
     Dates: start: 2011
  2. SYMBICORT [Suspect]
     Indication: ASTHMA
     Dosage: 80 /4.5 ONE PUFF DAILY
     Route: 055
  3. SYMBICORT [Suspect]
     Indication: ASTHMA
     Dosage: 80 MCG DAILY
     Route: 055
  4. PRILOSEC [Suspect]
     Route: 048
  5. LIPITOR [Concomitant]
  6. PREMARIN [Concomitant]
  7. HYDROCHLOROTHIAZIDE [Concomitant]

REACTIONS (3)
  - Dyspnoea [Recovered/Resolved]
  - Activities of daily living impaired [Recovered/Resolved]
  - Intentional drug misuse [Unknown]
